FAERS Safety Report 7717052-3 (Version None)
Quarter: 2011Q3

REPORT INFORMATION
  Report Type: 
  Country: None (occurrence: None)
  Receive Date: 20110830
  Receipt Date: 20110822
  Transmission Date: 20111222
  Serious: Yes (Hospitalization)
  Sender: FDA-Public Use
  Company Number: TR-BRISTOL-MYERS SQUIBB COMPANY-15989742

PATIENT
  Age: 68 Year
  Sex: Male

DRUGS (4)
  1. CYCLOPHOSPHAMIDE [Suspect]
     Indication: LYMPHOMA
     Dosage: 750MG/M - SUP2
  2. PREDNISONE [Suspect]
     Indication: LYMPHOMA
  3. DOXORUBICIN HCL [Suspect]
     Indication: LYMPHOMA
     Dosage: 50MG/M - SUP 2
  4. VINCRISTINE [Suspect]
     Indication: LYMPHOMA
     Dosage: 1.4MG/M - SUP 2

REACTIONS (2)
  - INTESTINAL PERFORATION [None]
  - ENTEROVESICAL FISTULA [None]
